FAERS Safety Report 5019369-2 (Version None)
Quarter: 2006Q2

REPORT INFORMATION
  Report Type: 
  Country: None (occurrence: None)
  Receive Date: 20060531
  Receipt Date: 20060518
  Transmission Date: 20061013
  Serious: Yes (Hospitalization, Other)
  Sender: FDA-Public Use
  Company Number: 2006066229

PATIENT
  Age: 54 Year
  Sex: Female

DRUGS (1)
  1. CELEBREX [Suspect]
     Indication: FACIAL PALSY
     Dosage: (200 MG UNKNOWN) ORAL
     Route: 048
     Dates: start: 20040101

REACTIONS (7)
  - ARRHYTHMIA [None]
  - EPISTAXIS [None]
  - HAEMATOMA [None]
  - MYOCARDIAL INFARCTION [None]
  - PALPITATIONS [None]
  - PLATELET COUNT DECREASED [None]
  - TACHYCARDIA [None]
